FAERS Safety Report 7961312-8 (Version None)
Quarter: 2011Q4

REPORT INFORMATION
  Report Type: 
  Country: None (occurrence: None)
  Receive Date: 20111207
  Receipt Date: 20111130
  Transmission Date: 20120403
  Serious: Yes (Other)
  Sender: FDA-Public Use
  Company Number: PHEH2011US009644

PATIENT
  Sex: Female

DRUGS (5)
  1. TOBI [Suspect]
     Indication: BRONCHIECTASIS
     Dates: start: 20111031
  2. FLOVENT [Concomitant]
     Dosage: UNK UKN, BID, 2 PUFFS TWICE A DAY
  3. FLOVENT [Concomitant]
     Dosage: UNK
     Dates: start: 20111031
  4. TOBI [Suspect]
     Indication: PSEUDOMONAS INFECTION
     Dosage: 300 MG, BID
  5. SEPTRA [Concomitant]

REACTIONS (4)
  - DYSPHONIA [None]
  - CHEST DISCOMFORT [None]
  - FEELING ABNORMAL [None]
  - DEVICE MALFUNCTION [None]
